FAERS Safety Report 8039548-X (Version None)
Quarter: 2012Q1

REPORT INFORMATION
  Report Type: 
  Country: None (occurrence: None)
  Receive Date: 20120111
  Receipt Date: 20111214
  Transmission Date: 20120608
  Serious: No
  Sender: FDA-Public Use
  Company Number: US-AMGEN-USASP2011060662

PATIENT
  Age: 59 Year
  Sex: Female

DRUGS (2)
  1. ENBREL [Suspect]
     Indication: PSORIASIS
     Dates: start: 20110901
  2. ENBREL [Suspect]
     Indication: RHEUMATOID ARTHRITIS
     Dosage: 50 MG, 2 TIMES/WK
     Dates: start: 20110923

REACTIONS (10)
  - LARYNGITIS [None]
  - RESPIRATORY TRACT CONGESTION [None]
  - EAR PAIN [None]
  - NASOPHARYNGITIS [None]
  - OTITIS MEDIA [None]
  - EPISTAXIS [None]
  - CONJUNCTIVITIS [None]
  - SINUSITIS [None]
  - INJECTION SITE REACTION [None]
  - NASAL CONGESTION [None]
